FAERS Safety Report 8887570 (Version 2)
Quarter: 2012Q4

REPORT INFORMATION
  Report Type: 
  Country: US (occurrence: None)
  Receive Date: 20121106
  Receipt Date: 20121212
  Transmission Date: 20130627
  Serious: Yes (Death)
  Sender: FDA-Public Use
  Company Number: None

PATIENT
  Age: 5 Year
  Sex: Male
  Weight: 19.05 kg

DRUGS (3)
  1. ELECTROLYTES NOS [Suspect]
     Indication: NUTRITIONAL SUPPORT
     Dates: start: 20120604, end: 20120608
  2. ELECTROLYTES NOS [Suspect]
     Indication: CHEMOTHERAPY
     Dates: start: 20120604, end: 20120608
  3. SODIUM ACETATE [Suspect]

REACTIONS (1)
  - No adverse event [None]
